FAERS Safety Report 4882087-5 (Version None)
Quarter: 2006Q1

REPORT INFORMATION
  Report Type: 
  Country: None (occurrence: None)
  Receive Date: 20060117
  Receipt Date: 20060105
  Transmission Date: 20060701
  Serious: Yes (Other)
  Sender: FDA-Public Use
  Company Number: US-MERCK-0601USA00580

PATIENT
  Age: 45 Year
  Sex: Male

DRUGS (6)
  1. SYNTHROID [Concomitant]
     Route: 065
  2. DOSTINEX [Concomitant]
     Route: 065
  3. ANDROGEL [Concomitant]
     Route: 065
  4. SINGULAIR [Suspect]
     Indication: HYPERSENSITIVITY
     Route: 048
     Dates: start: 20050803, end: 20050801
  5. ATROVENT [Concomitant]
     Route: 065
  6. RHINOCORT [Concomitant]
     Route: 065

REACTIONS (6)
  - ABDOMINAL PAIN [None]
  - DYSPEPSIA [None]
  - GASTROINTESTINAL DISORDER [None]
  - HEADACHE [None]
  - PALPITATIONS [None]
  - WEIGHT DECREASED [None]
